FAERS Safety Report 13180358 (Version 1)
Quarter: 2017Q1

REPORT INFORMATION
  Report Type: Report from Study
  Country: US (occurrence: US)
  Receive Date: 20170202
  Receipt Date: 20170202
  Transmission Date: 20170428
  Serious: Yes (Other)
  Sender: FDA-Public Use
  Company Number: US-JNJFOC-20161218296

PATIENT
  Age: 78 Year
  Sex: Male

DRUGS (5)
  1. IMBRUVICA [Suspect]
     Active Substance: IBRUTINIB
     Indication: WALDENSTROM^S MACROGLOBULINAEMIA
     Route: 048
     Dates: start: 20160615
  2. SINEMET [Concomitant]
     Active Substance: CARBIDOPA\LEVODOPA
  3. AMANTADINE [Suspect]
     Active Substance: AMANTADINE
     Indication: PRODUCT USED FOR UNKNOWN INDICATION
     Route: 065
  4. SELEGILINE [Concomitant]
     Active Substance: SELEGILINE
  5. IMBRUVICA [Suspect]
     Active Substance: IBRUTINIB
     Indication: WALDENSTROM^S MACROGLOBULINAEMIA
     Route: 048
     Dates: start: 201605

REACTIONS (26)
  - Dyspnoea exertional [Unknown]
  - Musculoskeletal stiffness [Unknown]
  - Fall [Recovered/Resolved]
  - Fatigue [Unknown]
  - Musculoskeletal pain [Unknown]
  - Constipation [Recovering/Resolving]
  - Neck pain [Unknown]
  - Back pain [Unknown]
  - Anaemia [Unknown]
  - Bradykinesia [Unknown]
  - Thrombocytopenia [Recovered/Resolved]
  - Arthralgia [Unknown]
  - Vision blurred [Unknown]
  - Balance disorder [Unknown]
  - Hallucination [Not Recovered/Not Resolved]
  - Haematoma [Unknown]
  - Contusion [Unknown]
  - Macular degeneration [Unknown]
  - Renal neoplasm [Unknown]
  - Asthenia [Unknown]
  - Resting tremor [Unknown]
  - Flank pain [Recovering/Resolving]
  - Oedema peripheral [Unknown]
  - Muscular weakness [Unknown]
  - Myalgia [Unknown]
  - Rash [Recovered/Resolved]

NARRATIVE: CASE EVENT DATE: 2016
